FAERS Safety Report 7502679-4 (Version None)
Quarter: 2011Q2

REPORT INFORMATION
  Report Type: 
  Country: None (occurrence: None)
  Receive Date: 20110525
  Receipt Date: 20110511
  Transmission Date: 20111010
  Serious: Yes (Other)
  Sender: FDA-Public Use
  Company Number: PHHY2011BR41739

PATIENT
  Sex: Female
  Weight: 58 kg

DRUGS (1)
  1. RASILEZ [Suspect]
     Indication: HYPERTENSION
     Dosage: 1 DF DAILY

REACTIONS (3)
  - AUTONOMIC NERVOUS SYSTEM IMBALANCE [None]
  - DRUG INEFFECTIVE [None]
  - DEMENTIA ALZHEIMER'S TYPE [None]
